FAERS Safety Report 8794545 (Version 1)
Quarter: 2012Q4

REPORT INFORMATION
  Report Type: 
  Country: US (occurrence: US)
  Receive Date: 20120917
  Receipt Date: 20120917
  Transmission Date: 20130627
  Serious: Yes (Other)
  Sender: FDA-Public Use
  Company Number: US-VERTEX PHARMACEUTICAL INC.-AE-2012-009914

PATIENT
  Age: 64 Year
  Sex: Male
  Weight: 88 kg

DRUGS (10)
  1. VX-950 (TELAPREVIR) [Suspect]
     Indication: HEPATITIS C
     Dosage: 750 mg, tid
     Route: 048
     Dates: end: 20120830
  2. RIBAPAK [Concomitant]
     Indication: HEPATITIS C
     Dosage: 1200 mg, qd
  3. RIBAPAK [Concomitant]
     Dosage: 1000 mg, qd
  4. RIBAPAK [Concomitant]
     Dosage: 600 UNK, UNK
  5. PEGASYS [Concomitant]
     Indication: HEPATITIS C
  6. SUBOXONE [Concomitant]
     Dosage: 2-.5 mg
  7. SYNTHROID [Concomitant]
  8. XANAX [Concomitant]
  9. VITAMIN D /00107901/ [Concomitant]
     Dosage: 1000 ut, UNK
  10. PRO-BIOTIC [Concomitant]

REACTIONS (8)
  - Red blood cell count decreased [Unknown]
  - Headache [Recovered/Resolved]
  - Decreased appetite [None]
  - Constipation [None]
  - Tremor [Recovered/Resolved]
  - Chills [Recovered/Resolved]
  - Fatigue [Unknown]
  - Rash [Unknown]
